FAERS Safety Report 9912187 (Version 1)
Quarter: 2014Q1

REPORT INFORMATION
  Report Type: Spontaneous
  Country: US (occurrence: US)
  Receive Date: 20140220
  Receipt Date: 20140220
  Transmission Date: 20141002
  Serious: Yes (Other)
  Sender: FDA-Public Use
  Company Number: US-AMGEN-USASP2014011137

PATIENT
  Age: 62 Year
  Sex: Female

DRUGS (6)
  1. PROLIA [Suspect]
     Indication: OSTEOPOROSIS POSTMENOPAUSAL
     Dosage: UNK
     Route: 065
     Dates: start: 20131210
  2. SYNTHROID [Concomitant]
  3. COUMADIN                           /00014802/ [Concomitant]
  4. CYTOMEL [Concomitant]
  5. VITAMIN D                          /00107901/ [Concomitant]
  6. CALCIUM                            /00060701/ [Concomitant]

REACTIONS (1)
  - Pericardial effusion [Not Recovered/Not Resolved]
